FAERS Safety Report 9990591 (Version 1)
Quarter: 2014Q1

REPORT INFORMATION
  Report Type: Report from Study
  Country: US (occurrence: US)
  Receive Date: 20140310
  Receipt Date: 20140310
  Transmission Date: 20141002
  Serious: No
  Sender: FDA-Public Use
  Company Number: US-ABBVIE-13P-163-1133226-00

PATIENT
  Age: 29 Year
  Sex: Female

DRUGS (7)
  1. HUMIRA [Suspect]
     Indication: CROHN^S DISEASE
     Dates: start: 201306
  2. PENTASA [Concomitant]
     Indication: CROHN^S DISEASE
     Dosage: 4 PILLS TWICE DAILY
  3. CIPRO [Concomitant]
     Indication: GASTROINTESTINAL FISTULA
  4. CIPRO [Concomitant]
     Indication: ABSCESS INTESTINAL
  5. FLAGYL [Concomitant]
     Indication: FISTULA
  6. FLAGYL [Concomitant]
     Indication: ABSCESS INTESTINAL
  7. LEXAPRO [Concomitant]
     Indication: ANXIETY
     Dosage: 10MG DAILY

REACTIONS (2)
  - Arthralgia [Not Recovered/Not Resolved]
  - Pain in extremity [Not Recovered/Not Resolved]
